FAERS Safety Report 17196687 (Version 2)
Quarter: 2020Q2

REPORT INFORMATION
  Report Type: Spontaneous
  Country: US (occurrence: US)
  Receive Date: 20191224
  Receipt Date: 20200401
  Transmission Date: 20200713
  Serious: Yes (Hospitalization)
  Sender: FDA-Public Use
  Company Number: US-APOTEX-2019AP026545

PATIENT
  Age: 6 Year
  Sex: Female

DRUGS (3)
  1. ZOLEDRONIC ACID INJECTION [Suspect]
     Active Substance: ZOLEDRONIC ACID
     Indication: BONE DENSITY DECREASED
     Dosage: 0.025 MG/KG, WHEN THE ADVERSE EVENT OCCURRED
     Route: 041
  2. ZOLEDRONIC ACID INJECTION [Suspect]
     Active Substance: ZOLEDRONIC ACID
     Indication: SPINAL MUSCULAR ATROPHY
     Dosage: 0.05 MG/KG, 0.05 MG/KG/DOSE (MAXIMUM DOSE: 4 MG) EVERY SIX MONTHS
     Route: 041
  3. SPINRAZA [Concomitant]
     Active Substance: NUSINERSEN
     Indication: PRODUCT USED FOR UNKNOWN INDICATION
     Dosage: UNK
     Route: 065
     Dates: start: 2017

REACTIONS (3)
  - Autonomic nervous system imbalance [Recovered/Resolved]
  - Acute phase reaction [Recovered/Resolved]
  - Diarrhoea [Recovered/Resolved]
